FAERS Safety Report 9455949 (Version 2)
Quarter: 2013Q3

REPORT INFORMATION
  Report Type: Spontaneous
  Country: DE (occurrence: DE)
  Receive Date: 20130813
  Receipt Date: 20130903
  Transmission Date: 20140515
  Serious: Yes (Death, Hospitalization)
  Sender: FDA-Public Use
  Company Number: DE-JNJFOC-20130805035

PATIENT
  Age: 78 Year
  Sex: Female

DRUGS (1)
  1. XARELTO [Suspect]
     Indication: THROMBOSIS PROPHYLAXIS
     Route: 048

REACTIONS (6)
  - Sepsis [Fatal]
  - Pneumonia [Fatal]
  - Cerebral infarction [Fatal]
  - Cerebral artery embolism [Fatal]
  - Coma [Fatal]
  - Drug ineffective [Unknown]
